FAERS Safety Report 21721901 (Version 1)
Quarter: 2022Q4

REPORT INFORMATION
  Report Type: Spontaneous
  Country: US (occurrence: None)
  Receive Date: 20221212
  Receipt Date: 20221212
  Transmission Date: 20230112
  Serious: No
  Sender: FDA-Public Use
  Company Number: None

PATIENT
  Sex: Male
  Weight: 68.95 kg

DRUGS (8)
  1. TEMOZOLOMIDE [Suspect]
     Active Substance: TEMOZOLOMIDE
     Indication: Brain neoplasm malignant
     Dosage: FREQUENCY : DAILY;?
     Route: 048
  2. CUMIN [Concomitant]
  3. DEXAMETHASONE [Concomitant]
  4. DIAZEPAM [Concomitant]
  5. FRANKINCENSE [Concomitant]
  6. INDIAN [Concomitant]
  7. LEVETIRACETAM [Concomitant]
  8. ONDANSETRON [Concomitant]

REACTIONS (2)
  - Hepatic enzyme increased [None]
  - Platelet count decreased [None]
